FAERS Safety Report 9763152 (Version 1)
Quarter: 2013Q4

REPORT INFORMATION
  Report Type: Spontaneous
  Country: US (occurrence: US)
  Receive Date: 20131216
  Receipt Date: 20131216
  Transmission Date: 20140711
  Serious: No
  Sender: FDA-Public Use
  Company Number: US-BIOGENIDEC-2013BI105347

PATIENT
  Age: 64 Year
  Sex: Female

DRUGS (6)
  1. TECFIDERA [Suspect]
     Indication: MULTIPLE SCLEROSIS
     Route: 048
     Dates: start: 20130820
  2. CALCIUM 600 [Concomitant]
  3. LOSARTAN POTASSIUM [Concomitant]
  4. VITAMIN C [Concomitant]
  5. VITAMIN D [Concomitant]
  6. PRESERVISION AREDS [Concomitant]

REACTIONS (1)
  - Multiple sclerosis relapse [Unknown]
